FAERS Safety Report 5638162-0 (Version None)
Quarter: 2008Q1

REPORT INFORMATION
  Report Type: 
  Country: None (occurrence: None)
  Receive Date: 20080226
  Receipt Date: 20080217
  Transmission Date: 20080703
  Serious: Yes (Death, Life-Threatening)
  Sender: FDA-Public Use
  Company Number: FR-ELI_LILLY_AND_COMPANY-FR200802003797

PATIENT
  Age: 48 Year
  Sex: Female

DRUGS (6)
  1. XIGRIS [Suspect]
     Indication: SEPTIC SHOCK
     Dosage: UNK, OTHER
     Route: 042
     Dates: start: 20080217, end: 20080217
  2. NORADRENALIN /00127501/ [Concomitant]
  3. VANCOMYCIN [Concomitant]
  4. DOBUTREX [Concomitant]
  5. CLAFORAN [Concomitant]
  6. NEXIUM [Concomitant]

REACTIONS (2)
  - SEPTIC SHOCK [None]
  - THROMBOCYTOPENIA [None]
